FAERS Safety Report 6922577-4 (Version None)
Quarter: 2010Q3

REPORT INFORMATION
  Report Type: 
  Country: None (occurrence: None)
  Receive Date: 20100813
  Receipt Date: 20100730
  Transmission Date: 20110219
  Serious: Yes (Hospitalization)
  Sender: FDA-Public Use
  Company Number: PHHY2010CA50408

PATIENT
  Sex: Female

DRUGS (1)
  1. SANDOSTATIN LAR [Suspect]
     Indication: NEOPLASM
     Dosage: 30 MG EVERY 4 WEEKS
     Route: 030
     Dates: start: 20100506

REACTIONS (4)
  - BLOOD IRON DECREASED [None]
  - ECCHYMOSIS [None]
  - FALL [None]
  - PHLEBITIS [None]
